FAERS Safety Report 4492219-9 (Version None)
Quarter: 2004Q4

REPORT INFORMATION
  Report Type: 
  Country: None (occurrence: None)
  Receive Date: 20041101
  Receipt Date: 20041020
  Transmission Date: 20050328
  Serious: Yes (Hospitalization)
  Sender: FDA-Public Use
  Company Number: 04-000732

PATIENT
  Age: 64 Year
  Sex: Female
  Weight: 62.1 kg

DRUGS (1)
  1. FEMRING [Suspect]
     Indication: MENOPAUSAL SYMPTOMS
     Dosage: 0.05 MG, QD, VAGINAL
     Route: 067
     Dates: start: 20041006, end: 20041011

REACTIONS (2)
  - ABDOMINAL PAIN UPPER [None]
  - CHOLECYSTECTOMY [None]
